FAERS Safety Report 13853591 (Version 1)
Quarter: 2020Q3

REPORT INFORMATION
  Report Type: Report from Study
  Country: CA (occurrence: CA)
  Receive Date: 20170809
  Receipt Date: 20170809
  Transmission Date: 20201104
  Serious: Yes (Other)
  Sender: FDA-Public Use
  Company Number: CA-JNJFOC-20170620195

PATIENT
  Age: 82 Year
  Sex: Male
  Weight: 81.9 kg

DRUGS (10)
  1. PLACEBO [Suspect]
     Active Substance: UNSPECIFIED INGREDIENT
     Indication: CARDIOVASCULAR EVENT PROPHYLAXIS
     Route: 048
     Dates: start: 20150325, end: 20150423
  2. RIVAROXABAN [Suspect]
     Active Substance: RIVAROXABAN
     Indication: CORONARY ARTERY DISEASE
     Route: 048
     Dates: start: 20150325, end: 20150423
  3. RIVAROXABAN [Suspect]
     Active Substance: RIVAROXABAN
     Indication: CORONARY ARTERY DISEASE
     Route: 048
     Dates: end: 20150924
  4. RIVAROXABAN [Suspect]
     Active Substance: RIVAROXABAN
     Indication: CARDIOVASCULAR EVENT PROPHYLAXIS
     Route: 048
     Dates: end: 20150924
  5. PLACEBO [Suspect]
     Active Substance: UNSPECIFIED INGREDIENT
     Indication: PERIPHERAL ARTERIAL OCCLUSIVE DISEASE
     Route: 048
     Dates: start: 20150325, end: 20150423
  6. PANTOPRAZOLE [Suspect]
     Active Substance: PANTOPRAZOLE
     Indication: PROPHYLAXIS AGAINST GASTROINTESTINAL ULCER
     Route: 048
     Dates: start: 20150325, end: 20150423
  7. RIVAROXABAN [Suspect]
     Active Substance: RIVAROXABAN
     Indication: PERIPHERAL ARTERIAL OCCLUSIVE DISEASE
     Route: 048
     Dates: start: 20150325, end: 20150423
  8. RIVAROXABAN [Suspect]
     Active Substance: RIVAROXABAN
     Indication: CARDIOVASCULAR EVENT PROPHYLAXIS
     Route: 048
     Dates: start: 20150325, end: 20150423
  9. PLACEBO [Suspect]
     Active Substance: UNSPECIFIED INGREDIENT
     Indication: CORONARY ARTERY DISEASE
     Route: 048
     Dates: start: 20150325, end: 20150423
  10. RIVAROXABAN [Suspect]
     Active Substance: RIVAROXABAN
     Indication: PERIPHERAL ARTERIAL OCCLUSIVE DISEASE
     Route: 048
     Dates: end: 20150924

REACTIONS (1)
  - Rash [Recovered/Resolved]

NARRATIVE: CASE EVENT DATE: 20150326
